FAERS Safety Report 5463338-5 (Version None)
Quarter: 2007Q3

REPORT INFORMATION
  Report Type: 
  Country: None (occurrence: None)
  Receive Date: 20070920
  Receipt Date: 20070911
  Transmission Date: 20080115
  Serious: Yes (Other)
  Sender: FDA-Public Use
  Company Number: US-ALLERGAN-0710164US

PATIENT
  Sex: Female

DRUGS (6)
  1. PRED FORTE [Suspect]
     Indication: POSTOPERATIVE CARE
     Dosage: UNK, Q2HR
     Route: 047
  2. DICLOFENAC [Suspect]
     Indication: POSTOPERATIVE CARE
     Dosage: UNK, QID
  3. TIMOPTIC [Concomitant]
     Indication: INTRAOCULAR PRESSURE INCREASED
  4. TIMOPTIC [Concomitant]
     Indication: EYE INFLAMMATION
  5. XALATAN [Concomitant]
     Indication: INTRAOCULAR PRESSURE INCREASED
  6. TOBRAMYCIN [Concomitant]
     Indication: POSTOPERATIVE CARE
     Dosage: UNK, QID

REACTIONS (5)
  - CATARACT OPERATION COMPLICATION [None]
  - EYE PENETRATION [None]
  - HYPOTONY OF EYE [None]
  - SCLERAL THINNING [None]
  - SEIDEL TEST POSITIVE [None]
